FAERS Safety Report 7685741-5 (Version None)
Quarter: 2011Q3

REPORT INFORMATION
  Report Type: 
  Country: None (occurrence: None)
  Receive Date: 20110815
  Receipt Date: 20110815
  Transmission Date: 20111222
  Serious: Yes (Hospitalization)
  Sender: FDA-Public Use
  Company Number: None

PATIENT
  Sex: Male
  Weight: 70.306 kg

DRUGS (1)
  1. PRADAXA [Suspect]
     Indication: ARRHYTHMIA SUPRAVENTRICULAR
     Dosage: 75 MG
     Route: 048
     Dates: start: 20110601, end: 20110810

REACTIONS (3)
  - GASTROINTESTINAL HAEMORRHAGE [None]
  - HYPOGLYCAEMIA [None]
  - HAEMATURIA [None]
